FAERS Safety Report 25298544 (Version 1)
Quarter: 2025Q2

REPORT INFORMATION
  Report Type: Spontaneous
  Country: US (occurrence: US)
  Receive Date: 20250512
  Receipt Date: 20250512
  Transmission Date: 20250717
  Serious: Yes (Life-Threatening, Other)
  Sender: AUROBINDO
  Company Number: US-AUROBINDO-AUR-APL-2025-023779

PATIENT
  Age: 82 Year
  Sex: Male

DRUGS (4)
  1. CARBOPLATIN [Suspect]
     Active Substance: CARBOPLATIN
     Indication: Neoplasm
     Route: 065
     Dates: start: 202112
  2. PACLITAXEL [Suspect]
     Active Substance: PACLITAXEL
     Indication: Neoplasm
     Route: 065
     Dates: start: 202112
  3. PEMBROLIZUMAB [Suspect]
     Active Substance: PEMBROLIZUMAB
     Indication: Neoplasm
     Route: 065
     Dates: start: 202201, end: 202207
  4. ALPELISIB [Suspect]
     Active Substance: ALPELISIB
     Indication: Neoplasm
     Dosage: 150 MILLIGRAM, TWO TIMES A DAY
     Route: 065
     Dates: start: 202208

REACTIONS (1)
  - Drug ineffective [Unknown]
